FAERS Safety Report 25389297 (Version 2)
Quarter: 2025Q2

REPORT INFORMATION
  Report Type: Spontaneous
  Country: JP (occurrence: JP)
  Receive Date: 20250603
  Receipt Date: 20250616
  Transmission Date: 20250717
  Serious: Yes (Other)
  Sender: PHARMACOSMOS A/S
  Company Number: JP-NEBO-697195

PATIENT
  Sex: Female

DRUGS (3)
  1. LOXOPROFEN [Concomitant]
     Active Substance: LOXOPROFEN
  2. REBAMIPIDE [Concomitant]
     Active Substance: REBAMIPIDE
  3. FERRIC DERISOMALTOSE [Suspect]
     Active Substance: FERRIC DERISOMALTOSE
     Indication: Iron deficiency anaemia
     Dates: start: 20250521, end: 20250521

REACTIONS (1)
  - Rhabdomyolysis [Recovered/Resolved]
